FAERS Safety Report 22773301 (Version 2)
Quarter: 2023Q4

REPORT INFORMATION
  Report Type: Spontaneous
  Country: US (occurrence: US)
  Receive Date: 20230801
  Receipt Date: 20231214
  Transmission Date: 20240110
  Serious: No
  Sender: FDA-Public Use
  Company Number: US-XERIS PHARMACEUTICALS-2023XER01975

PATIENT
  Sex: Male

DRUGS (1)
  1. GVOKE KIT [Suspect]
     Active Substance: GLUCAGON

REACTIONS (2)
  - Needle issue [Unknown]
  - No adverse event [Unknown]
